FAERS Safety Report 6980413-4 (Version None)
Quarter: 2010Q3

REPORT INFORMATION
  Report Type: 
  Country: None (occurrence: None)
  Receive Date: 20100909
  Receipt Date: 20100826
  Transmission Date: 20110219
  Serious: Yes (Hospitalization)
  Sender: FDA-Public Use
  Company Number: 017864

PATIENT
  Sex: Female

DRUGS (2)
  1. CERTOLIZUMAB PEGOL (CERTOLIZUMAB PEGOL) [Suspect]
     Indication: RHEUMATOID ARTHRITIS
     Dosage: (SUBCUTANEOUS)
     Route: 058
     Dates: start: 20100726, end: 20100825
  2. PREDNISOLONE [Concomitant]

REACTIONS (5)
  - ABDOMINAL MASS [None]
  - ASCITES [None]
  - COLITIS ISCHAEMIC [None]
  - CYST [None]
  - ERYTHEMA [None]
